FAERS Safety Report 8437910-4 (Version None)
Quarter: 2012Q2

REPORT INFORMATION
  Report Type: 
  Country: None (occurrence: None)
  Receive Date: 20120614
  Receipt Date: 20120522
  Transmission Date: 20120825
  Serious: No
  Sender: FDA-Public Use
  Company Number: US-AMGEN-USASP2012032250

PATIENT
  Sex: Female

DRUGS (4)
  1. ATENOLOL [Concomitant]
  2. CALCIUM [Concomitant]
  3. DYAZIDE [Concomitant]
  4. PROLIA [Suspect]
     Indication: OSTEOPOROSIS POSTMENOPAUSAL
     Dosage: 60 MG, Q6MO
     Dates: start: 20110501

REACTIONS (4)
  - RASH PRURITIC [None]
  - PAPULE [None]
  - RASH ERYTHEMATOUS [None]
  - DRY SKIN [None]
